FAERS Safety Report 15117093 (Version 3)
Quarter: 2018Q3

REPORT INFORMATION
  Report Type: Report from Study
  Country: IT (occurrence: IT)
  Receive Date: 20180706
  Receipt Date: 20180724
  Transmission Date: 20181010
  Serious: Yes (Other)
  Sender: FDA-Public Use
  Company Number: IT-JNJFOC-20180701747

PATIENT
  Age: 61 Year
  Sex: Male
  Weight: 75 kg

DRUGS (13)
  1. CACIT VITAMIN D3 [Concomitant]
     Active Substance: CALCIUM CARBONATE\CHOLECALCIFEROL
     Route: 065
     Dates: start: 201803
  2. CARDIOASPIRIN [Concomitant]
     Active Substance: ASPIRIN
     Indication: MYOCARDIAL INFARCTION
     Route: 065
     Dates: start: 2013
  3. TORVAST [Concomitant]
     Active Substance: ATORVASTATIN
     Indication: BLOOD CHOLESTEROL INCREASED
     Route: 065
     Dates: start: 2017
  4. IRON [Concomitant]
     Active Substance: IRON
     Indication: ANAEMIA
     Route: 065
     Dates: start: 201803
  5. SERTRALINE [Concomitant]
     Active Substance: SERTRALINE HYDROCHLORIDE
     Indication: DEPRESSION
     Route: 065
     Dates: start: 201806
  6. ESCITALOPRAM [Concomitant]
     Active Substance: ESCITALOPRAM OXALATE
     Indication: ANXIETY
     Route: 065
     Dates: start: 201712
  7. PANTORC [Concomitant]
     Active Substance: PANTOPRAZOLE SODIUM
     Route: 065
     Dates: start: 201712
  8. PREDNISONE. [Concomitant]
     Active Substance: PREDNISONE
     Route: 065
     Dates: start: 201806
  9. SIMPONI [Suspect]
     Active Substance: GOLIMUMAB
     Indication: COLITIS ULCERATIVE
     Route: 058
     Dates: start: 20180416, end: 20180416
  10. SIMPONI [Suspect]
     Active Substance: GOLIMUMAB
     Indication: COLITIS ULCERATIVE
     Route: 058
     Dates: start: 20180530, end: 20180622
  11. MEDROL [Concomitant]
     Active Substance: METHYLPREDNISOLONE
     Route: 065
     Dates: start: 20180105
  12. 5?ASA [Concomitant]
     Active Substance: MESALAMINE
     Route: 065
     Dates: start: 2013
  13. LANSOPRAZOLE. [Concomitant]
     Active Substance: LANSOPRAZOLE
     Route: 065
     Dates: start: 201806

REACTIONS (3)
  - Drug effect decreased [Recovering/Resolving]
  - Anaemia [Recovering/Resolving]
  - Colitis ulcerative [Recovering/Resolving]

NARRATIVE: CASE EVENT DATE: 201804
